FAERS Safety Report 18566083 (Version 2)
Quarter: 2020Q4

REPORT INFORMATION
  Report Type: Spontaneous
  Country: DE (occurrence: DE)
  Receive Date: 20201201
  Receipt Date: 20201202
  Transmission Date: 20210114
  Serious: Yes (Other)
  Sender: FDA-Public Use
  Company Number: DE-CELGENEUS-DEU-20201106904

PATIENT
  Age: 76 Year
  Sex: Female

DRUGS (2)
  1. VENETOCLAX. [Concomitant]
     Active Substance: VENETOCLAX
     Indication: MYELODYSPLASTIC SYNDROME
     Route: 065
  2. VIDAZA [Suspect]
     Active Substance: AZACITIDINE
     Indication: MYELODYSPLASTIC SYNDROME
     Route: 065
     Dates: start: 20171129, end: 20201126

REACTIONS (4)
  - Transformation to acute myeloid leukaemia [Unknown]
  - Full blood count decreased [Unknown]
  - Drug intolerance [Unknown]
  - Cytopenia [Unknown]
